FAERS Safety Report 24041656 (Version 1)
Quarter: 2024Q3

REPORT INFORMATION
  Report Type: Spontaneous
  Country: US (occurrence: US)
  Receive Date: 20240702
  Receipt Date: 20240702
  Transmission Date: 20241017
  Serious: No
  Sender: BRISTOL MYERS SQUIBB
  Company Number: US-BRISTOL-MYERS SQUIBB COMPANY-2024-105626

PATIENT
  Age: 51 Year
  Sex: Male

DRUGS (4)
  1. SPRYCEL [Suspect]
     Active Substance: DASATINIB
     Indication: Chronic myeloid leukaemia
     Route: 048
  2. PONATINIB [Suspect]
     Active Substance: PONATINIB
     Indication: Product used for unknown indication
  3. PONATINIB [Suspect]
     Active Substance: PONATINIB
  4. IMATINIB [Suspect]
     Active Substance: IMATINIB
     Indication: Product used for unknown indication
     Route: 048

REACTIONS (2)
  - Urticaria [Unknown]
  - Abdominal pain upper [Unknown]
